FAERS Safety Report 20917050 (Version 2)
Quarter: 2022Q3

REPORT INFORMATION
  Report Type: Spontaneous
  Country: US (occurrence: US)
  Receive Date: 20220606
  Receipt Date: 20220801
  Transmission Date: 20221026
  Serious: No
  Sender: FDA-Public Use
  Company Number: US-TOLMAR, INC.-22US034585

PATIENT
  Sex: Male

DRUGS (6)
  1. ELIGARD [Suspect]
     Active Substance: LEUPROLIDE ACETATE
     Indication: Product used for unknown indication
     Dosage: 22.5 MILLIGRAM
     Dates: start: 2011
  2. ENZALUTAMIDE [Concomitant]
     Active Substance: ENZALUTAMIDE
     Indication: Prostate cancer
     Dosage: 160 MILLIGRAM, QD
     Route: 048
     Dates: start: 20170419
  3. DICLOFENAC [Concomitant]
     Active Substance: DICLOFENAC
     Indication: Product used for unknown indication
     Dosage: 35 MILLIGRAM
  4. METFORMIN [Concomitant]
     Active Substance: METFORMIN HYDROCHLORIDE
     Indication: Product used for unknown indication
  5. UROXATRAL [Concomitant]
     Active Substance: ALFUZOSIN HYDROCHLORIDE
     Indication: Product used for unknown indication
     Dosage: 10 MILLIGRAM
  6. MEGESTROL ACETATE [Concomitant]
     Active Substance: MEGESTROL ACETATE
     Indication: Product used for unknown indication

REACTIONS (1)
  - Hot flush [Unknown]

NARRATIVE: CASE EVENT DATE: 20110101
